FAERS Safety Report 6853644-1 (Version None)
Quarter: 2010Q3

REPORT INFORMATION
  Report Type: 
  Country: None (occurrence: None)
  Receive Date: 20100717
  Receipt Date: 20080125
  Transmission Date: 20110219
  Serious: Yes (Other)
  Sender: FDA-Public Use
  Company Number: US-PFIZER INC-2007105358

PATIENT
  Sex: Female
  Weight: 65.8 kg

DRUGS (7)
  1. CHANTIX [Suspect]
     Indication: SMOKING CESSATION THERAPY
     Dates: start: 20061001
  2. LAMICTAL [Concomitant]
     Indication: CONVULSION
  3. CYMBALTA [Concomitant]
     Indication: DEPRESSION
  4. LEVOTHYROXINE SODIUM [Concomitant]
     Indication: THYROID DISORDER
  5. ALPRAZOLAM [Concomitant]
  6. PRIMIDONE [Concomitant]
  7. CLONAZEPAM [Concomitant]

REACTIONS (2)
  - CONVULSION [None]
  - SOMNOLENCE [None]
